FAERS Safety Report 9813715 (Version 3)
Quarter: 2014Q1

REPORT INFORMATION
  Report Type: Report from Study
  Country: AU (occurrence: AU)
  Receive Date: 20140113
  Receipt Date: 20140313
  Transmission Date: 20141002
  Serious: Yes (Hospitalization)
  Sender: FDA-Public Use
  Company Number: AU-BRISTOL-MYERS SQUIBB COMPANY-19944719

PATIENT
  Age: 48 Year
  Sex: Female

DRUGS (13)
  1. ORENCIA [Suspect]
     Indication: RHEUMATOID ARTHRITIS
     Dosage: LAST INF 19NOV13
     Route: 042
     Dates: start: 20101116
  2. PREDNISOLONE [Concomitant]
  3. FOLIC ACID [Concomitant]
  4. PANADEINE FORTE [Concomitant]
     Dosage: 2TABS
  5. OROXINE [Concomitant]
  6. LIPITOR [Concomitant]
  7. DIAFORMIN [Concomitant]
  8. MICARDIS [Concomitant]
  9. VALTREX [Concomitant]
  10. NEXIUM [Concomitant]
  11. ARAVA [Concomitant]
  12. PLAVIX [Concomitant]
  13. NITROLINGUAL SPRAY [Concomitant]

REACTIONS (2)
  - Ingrown hair [Recovered/Resolved]
  - Staphylococcal infection [Unknown]
